FAERS Safety Report 10102465 (Version 2)
Quarter: 2014Q2

REPORT INFORMATION
  Report Type: Other
  Country: US (occurrence: US)
  Receive Date: 20140424
  Receipt Date: 20140620
  Transmission Date: 20141212
  Serious: Yes (Hospitalization, Other)
  Sender: FDA-Public Use
  Company Number: US-GSKPPD-2014GSK000283

PATIENT
  Age: 65 Year
  Sex: Female

DRUGS (4)
  1. AVANDIA [Suspect]
     Indication: DIABETES MELLITUS
     Route: 048
     Dates: start: 20070214
  2. AVANDARYL [Suspect]
     Indication: DIABETES MELLITUS
     Dosage: UNIT DOSE: 4/4MG
     Route: 048
     Dates: start: 20060620, end: 20070214
  3. LISINOPRIL [Concomitant]
     Route: 048
  4. PLAVIX [Concomitant]
     Route: 048

REACTIONS (1)
  - Chest pain [Recovered/Resolved]
